FAERS Safety Report 5137627-8 (Version None)
Quarter: 2006Q4

REPORT INFORMATION
  Report Type: 
  Country: None (occurrence: None)
  Receive Date: 20061030
  Receipt Date: 20061018
  Transmission Date: 20070319
  Serious: Yes (Other)
  Sender: FDA-Public Use
  Company Number: US-JNJFOC-20050200601

PATIENT
  Sex: Female
  Weight: 70.31 kg

DRUGS (1)
  1. LEVAQUIN [Suspect]
     Indication: SINUSITIS
     Route: 048

REACTIONS (8)
  - DISTURBANCE IN ATTENTION [None]
  - FLUSHING [None]
  - HEAD DISCOMFORT [None]
  - INSOMNIA [None]
  - PARAESTHESIA [None]
  - PERIPHERAL COLDNESS [None]
  - RETINAL VEIN OCCLUSION [None]
  - SKIN BURNING SENSATION [None]
